FAERS Safety Report 11705162 (Version 2)
Quarter: 2015Q4

REPORT INFORMATION
  Report Type: Spontaneous
  Country: TW (occurrence: TW)
  Receive Date: 20151106
  Receipt Date: 20151117
  Transmission Date: 20160304
  Serious: Yes (Hospitalization)
  Sender: FDA-Public Use
  Company Number: TW-PFIZER INC-2015372318

PATIENT
  Age: 22 Year
  Sex: Male

DRUGS (1)
  1. TYGACIL [Suspect]
     Active Substance: TIGECYCLINE
     Indication: THERMAL BURN
     Dosage: 50 MG, 2X/DAY
     Route: 042
     Dates: start: 20150910, end: 20150930

REACTIONS (3)
  - Drug hypersensitivity [Unknown]
  - Staphylococcal infection [Unknown]
  - Skin graft detachment [Recovering/Resolving]

NARRATIVE: CASE EVENT DATE: 20150930
